FAERS Safety Report 15101841 (Version 1)
Quarter: 2018Q3

REPORT INFORMATION
  Report Type: Report from Study
  Country: US (occurrence: US)
  Receive Date: 20180703
  Receipt Date: 20180703
  Transmission Date: 20181010
  Serious: Yes (Hospitalization)
  Sender: FDA-Public Use
  Company Number: US-PFIZER INC-2016146965

PATIENT
  Age: 77 Year
  Sex: Male
  Weight: 84.8 kg

DRUGS (24)
  1. VENETOCLAX. [Suspect]
     Active Substance: VENETOCLAX
     Indication: ACUTE MYELOID LEUKAEMIA
     Dosage: 50 MG, 1 IN 1 D
     Route: 048
     Dates: start: 20151107, end: 20151107
  2. LEVOFLOXACIN. [Concomitant]
     Active Substance: LEVOFLOXACIN
     Indication: INFECTION PROPHYLAXIS
     Dosage: 500 MG, 1 IN 1 D
     Route: 048
     Dates: start: 20151125
  3. ALLOPURINOL. [Concomitant]
     Active Substance: ALLOPURINOL
     Indication: PROPHYLAXIS
  4. NORMAL SALINE SOLUTION [Concomitant]
     Indication: TUMOUR LYSIS SYNDROME
     Dosage: 1000 ML, UNK
     Dates: start: 20151105, end: 20151108
  5. CYTARABINE. [Suspect]
     Active Substance: CYTARABINE
     Dosage: 20 MG/M2, DAYS 1?10 OF ALL CYCLES, CYCLE 28 DAYS
     Route: 058
     Dates: start: 20160111
  6. VENETOCLAX. [Suspect]
     Active Substance: VENETOCLAX
     Dosage: 200 MG, 1 IN 1 D
     Route: 048
     Dates: start: 20151109, end: 20151109
  7. CYTARABINE. [Suspect]
     Active Substance: CYTARABINE
     Indication: ACUTE MYELOID LEUKAEMIA
     Dosage: 20 MG/M2, DAYS 1?10 OF ALL CYCLES, CYCLE 28 DAYS
     Route: 058
     Dates: start: 20151106, end: 20151111
  8. VENETOCLAX. [Suspect]
     Active Substance: VENETOCLAX
     Dosage: 100 MG, 1 IN 1 D
     Route: 048
     Dates: start: 20151108, end: 20151108
  9. VENETOCLAX. [Suspect]
     Active Substance: VENETOCLAX
     Dosage: 600 MG, 1 IN 1 D
     Route: 048
     Dates: start: 20151120
  10. GLIMEPIRIDE. [Concomitant]
     Active Substance: GLIMEPIRIDE
     Indication: DIABETES MELLITUS
  11. LISINOPRIL. [Concomitant]
     Active Substance: LISINOPRIL
     Indication: HYPERTENSION
  12. NORMAL SALINE SOLUTION [Concomitant]
     Indication: FLUID REPLACEMENT
  13. LISINOPRIL. [Concomitant]
     Active Substance: LISINOPRIL
     Indication: PROPHYLAXIS
     Dosage: 5 MG, 1 IN 1 D
     Route: 048
     Dates: start: 20130101
  14. NORMAL SALINE SOLUTION [Concomitant]
     Indication: PROPHYLAXIS
  15. DEXTROSE 5% [Concomitant]
     Active Substance: DEXTROSE
     Indication: PROPHYLAXIS
  16. ALLOPURINOL. [Concomitant]
     Active Substance: ALLOPURINOL
     Indication: TUMOUR LYSIS SYNDROME
     Dosage: 600 MG, UNK
     Route: 048
     Dates: start: 20151105, end: 20151125
  17. VENETOCLAX. [Suspect]
     Active Substance: VENETOCLAX
     Dosage: 400 MG, 1 IN 1 D
     Route: 048
     Dates: start: 20151110, end: 20151110
  18. SALINE /00075401/ [Concomitant]
     Active Substance: SODIUM CHLORIDE
     Indication: SEASONAL ALLERGY
     Dosage: UNK UNK, 1 IN 1 D
     Route: 045
     Dates: start: 20151109, end: 20151201
  19. VENETOCLAX. [Suspect]
     Active Substance: VENETOCLAX
     Dosage: 600 MG, 1 IN 1 D
     Route: 048
     Dates: start: 20151111, end: 20151111
  20. DILTIAZEM HCL [Concomitant]
     Active Substance: DILTIAZEM HYDROCHLORIDE
     Indication: HYPERTENSION
     Dosage: 240 MG, 1 IN 1 D
     Route: 048
     Dates: start: 19850101
  21. LISINOPRIL. [Concomitant]
     Active Substance: LISINOPRIL
     Indication: HYPERTENSION
  22. GLIMEPIRIDE. [Concomitant]
     Active Substance: GLIMEPIRIDE
     Indication: HYPERGLYCAEMIA
     Dosage: 2 MG, 2 IN 1 D
     Route: 048
     Dates: start: 20070101
  23. DEXTROSE 5% [Concomitant]
     Active Substance: DEXTROSE
     Indication: TUMOUR LYSIS SYNDROME
     Dosage: 40 MEQ, UNK
     Dates: start: 20151203, end: 20151204
  24. DEXTROSE 5% [Concomitant]
     Active Substance: DEXTROSE
     Indication: FLUID REPLACEMENT

REACTIONS (1)
  - Large intestine perforation [Recovered/Resolved]

NARRATIVE: CASE EVENT DATE: 20151112
